FAERS Safety Report 13781261 (Version 1)
Quarter: 2017Q3

REPORT INFORMATION
  Report Type: Spontaneous
  Country: US (occurrence: US)
  Receive Date: 20170724
  Receipt Date: 20170724
  Transmission Date: 20171127
  Serious: No
  Sender: FDA-Public Use
  Company Number: US-BAYER-2017-136269

PATIENT
  Age: 89 Year
  Sex: Female
  Weight: 69 kg

DRUGS (3)
  1. OXYCODONE [Concomitant]
     Active Substance: OXYCODONE
     Dosage: UNK
  2. ALKA-SELTZER ORIGINAL [Suspect]
     Active Substance: ANHYDROUS CITRIC ACID\ASPIRIN\SODIUM BICARBONATE
     Indication: VULVOVAGINAL PRURITUS
     Dosage: 0.25 DF, HS
     Route: 048
  3. MIRALAX [Suspect]
     Active Substance: POLYETHYLENE GLYCOL 3350
     Indication: GASTROINTESTINAL DISORDER
     Dosage: 1/4 TEASPOON UNK
     Route: 048
     Dates: start: 20170713, end: 20170713

REACTIONS (4)
  - Product use issue [Unknown]
  - Product use in unapproved indication [Unknown]
  - Incorrect drug administration duration [None]
  - Product use issue [Unknown]

NARRATIVE: CASE EVENT DATE: 20170713
